FAERS Safety Report 13406313 (Version 1)
Quarter: 2017Q2

REPORT INFORMATION
  Report Type: Spontaneous
  Country: JP (occurrence: JP)
  Receive Date: 20170405
  Receipt Date: 20170405
  Transmission Date: 20170830
  Serious: Yes (Other)
  Sender: FDA-Public Use
  Company Number: JP-GILEAD-2014-0127769

PATIENT
  Age: 72 Year
  Sex: Female

DRUGS (1)
  1. HEPSERA [Suspect]
     Active Substance: ADEFOVIR DIPIVOXIL
     Indication: PRODUCT USED FOR UNKNOWN INDICATION
     Dosage: UNK
     Route: 048
     Dates: start: 200803, end: 201208

REACTIONS (5)
  - Musculoskeletal disorder [Unknown]
  - Osteomalacia [Unknown]
  - Spinal compression fracture [Unknown]
  - Fanconi syndrome acquired [Unknown]
  - Spinal disorder [Unknown]
